FAERS Safety Report 16343991 (Version 1)
Quarter: 2019Q2

REPORT INFORMATION
  Report Type: Spontaneous
  Country: JP (occurrence: JP)
  Receive Date: 20190522
  Receipt Date: 20190522
  Transmission Date: 20190711
  Serious: Yes (Other)
  Sender: FDA-Public Use
  Company Number: JP-GUERBET-JP-20190068

PATIENT
  Age: 59 Year
  Sex: Male

DRUGS (3)
  1. LIPIODOL [Suspect]
     Active Substance: ETHIODIZED OIL
     Indication: THERAPEUTIC EMBOLISATION
     Route: 013
  2. ALCOHOL. [Concomitant]
     Active Substance: ALCOHOL
     Indication: THERAPEUTIC EMBOLISATION
     Route: 013
  3. HISTOACRYL [Concomitant]
     Active Substance: ENBUCRILATE
     Indication: THERAPEUTIC EMBOLISATION
     Route: 013

REACTIONS (3)
  - Product use in unapproved indication [Unknown]
  - Splenic infarction [Unknown]
  - Pyrexia [Unknown]
